FAERS Safety Report 10245044 (Version 1)
Quarter: 2014Q2

REPORT INFORMATION
  Report Type: Report from Study
  Country: VN (occurrence: VN)
  Receive Date: 20140618
  Receipt Date: 20140618
  Transmission Date: 20141212
  Serious: Yes (Death, Other)
  Sender: FDA-Public Use
  Company Number: VN-GILEAD-2014-0105527

PATIENT
  Age: 52 Year
  Sex: Male

DRUGS (11)
  1. EFAVIRENZ/EMTRICITABINE/TENOFOVIR DISOPROXIL FUMARATE [Suspect]
     Indication: HIV INFECTION
     Dosage: 1 DF, QD
     Route: 048
     Dates: start: 20140506, end: 20140519
  2. EFAVIRENZ/EMTRICITABINE/TENOFOVIR DISOPROXIL FUMARATE [Suspect]
     Indication: HEPATITIS C
  3. AZITHROMYCIN [Concomitant]
     Indication: PYREXIA
     Dosage: UNK
  4. AZITHROMYCIN [Concomitant]
     Indication: COUGH
  5. CEFTRIAXONE [Concomitant]
  6. RIFAMPICIN [Concomitant]
  7. ISONIAZID [Concomitant]
  8. PYRAZINAMIDE [Concomitant]
  9. ETHAMBUTOL [Concomitant]
  10. OXYGEN [Concomitant]
  11. CONTRIMOXAZOLE [Concomitant]

REACTIONS (1)
  - Death [Fatal]
